FAERS Safety Report 6986980-9 (Version None)
Quarter: 2010Q3

REPORT INFORMATION
  Report Type: 
  Country: None (occurrence: None)
  Receive Date: 20100916
  Receipt Date: 20100913
  Transmission Date: 20110219
  Serious: No
  Sender: FDA-Public Use
  Company Number: US-BIOGENIDEC-2010BI011888

PATIENT
  Sex: Female

DRUGS (2)
  1. TYSABRI [Suspect]
     Indication: MULTIPLE SCLEROSIS
     Route: 042
     Dates: start: 20070102
  2. COPAXONE [Concomitant]
     Dates: start: 20010201

REACTIONS (8)
  - APHASIA [None]
  - CONSTIPATION [None]
  - FATIGUE [None]
  - HEADACHE [None]
  - MULTIPLE SCLEROSIS RELAPSE [None]
  - MUSCULOSKELETAL DISCOMFORT [None]
  - VEIN DISORDER [None]
  - VENOUS INJURY [None]
